FAERS Safety Report 5978350-7 (Version None)
Quarter: 2008Q4

REPORT INFORMATION
  Report Type: 
  Country: None (occurrence: None)
  Receive Date: 20081204
  Receipt Date: 20081029
  Transmission Date: 20090506
  Serious: No
  Sender: FDA-Public Use
  Company Number: US-BAYER-200837227NA

PATIENT
  Age: 42 Year
  Sex: Female

DRUGS (1)
  1. MIRENA [Suspect]
     Indication: HYPOMENORRHOEA
     Route: 015
     Dates: start: 20070901

REACTIONS (2)
  - ABDOMINAL TENDERNESS [None]
  - IUCD COMPLICATION [None]
